FAERS Safety Report 7788856 (Version 2)
Quarter: 2013Q1

REPORT INFORMATION
  Report Type: Report from Study
  Country: US (occurrence: US)
  Receive Date: 20110130
  Receipt Date: 20130107
  Transmission Date: 20140127
  Serious: Yes (Other)
  Sender: FDA-Public Use
  Company Number: US-ABBOTT-10P-163-0674446-00

PATIENT
  Age: 56 Year
  Sex: Female

DRUGS (18)
  1. HUMIRA [Suspect]
     Indication: RHEUMATOID ARTHRITIS
     Route: 058
     Dates: start: 2009
  2. METHOTREXATE [Concomitant]
     Indication: RHEUMATOID ARTHRITIS
     Dosage: ONCE WEEKLY ON TUESDAY
  3. FOLIC ACID [Concomitant]
     Indication: VITAMIN SUPPLEMENTATION
  4. PREDNISONE [Concomitant]
     Indication: RHEUMATOID ARTHRITIS
  5. HYDROXYCHLOROQUINE [Concomitant]
     Indication: RHEUMATOID ARTHRITIS
     Dosage: 2 TABS
  6. PROTONIX [Concomitant]
     Indication: GASTRIC DISORDER
  7. ELMIRON [Concomitant]
     Indication: CYSTITIS
  8. ZOLOFT [Concomitant]
     Indication: DEPRESSION
  9. TRAZODONE [Concomitant]
     Indication: INSOMNIA
  10. CLONAZEPAM [Concomitant]
     Indication: INSOMNIA
     Dosage: 1/2  TAB TO 1 TAB AT NIGHT
  11. METHOCARBAMOL [Concomitant]
     Indication: MUSCLE RELAXANT THERAPY
  12. HYDROCODONE [Concomitant]
     Indication: PAIN
     Dosage: 10/325 1-2 TABS THREE TIMES A DAY
  13. ASPIRIN [Concomitant]
     Indication: PRODUCT USED FOR UNKNOWN INDICATION
  14. MULTIVITAMIN [Concomitant]
     Indication: VITAMIN SUPPLEMENTATION
  15. PREMARIN [Concomitant]
     Indication: VULVOVAGINAL DRYNESS
     Dosage: EVERY NIGHT FOR THREE WEEKS THEN TWICE PER WEEK
     Route: 067
  16. PREMARIN [Concomitant]
  17. CALCIUM CHEWS [Concomitant]
     Indication: MINERAL SUPPLEMENTATION
  18. LEVACOR AND CALCIUM [Concomitant]
     Indication: PRODUCT USED FOR UNKNOWN INDICATION

REACTIONS (6)
  - Pain [Not Recovered/Not Resolved]
  - Fibula fracture [Recovering/Resolving]
  - Fall [Not Recovered/Not Resolved]
  - Injection site pain [Not Recovered/Not Resolved]
  - Injection site bruising [Not Recovered/Not Resolved]
  - Nasopharyngitis [Not Recovered/Not Resolved]
